FAERS Safety Report 7218696-8 (Version None)
Quarter: 2011Q1

REPORT INFORMATION
  Report Type: 
  Country: None (occurrence: None)
  Receive Date: 20110110
  Receipt Date: 20101029
  Transmission Date: 20110831
  Serious: No
  Sender: FDA-Public Use
  Company Number: US-ABBOTT-10P-163-0682416-00

PATIENT
  Age: 74 Year
  Sex: Female

DRUGS (8)
  1. METOPROLOL [Concomitant]
     Indication: CARDIAC DISORDER
  2. AVELOX [Concomitant]
     Indication: INFECTION
  3. LOSARTAN POTASSIUM [Concomitant]
     Indication: PRODUCT USED FOR UNKNOWN INDICATION
     Dosage: 100/25MG ONCE A DAY
  4. TRAMADOL [Concomitant]
     Indication: PAIN
  5. INHALER [Concomitant]
     Indication: PRODUCT USED FOR UNKNOWN INDICATION
  6. DILTIAZEM [Concomitant]
     Indication: HYPERTENSION
  7. VICODIN [Suspect]
     Indication: PRODUCT USED FOR UNKNOWN INDICATION
  8. SYNTHROID [Concomitant]
     Indication: THYROID DISORDER

REACTIONS (1)
  - ABDOMINAL DISCOMFORT [None]
